FAERS Safety Report 7915756-0 (Version None)
Quarter: 2011Q4

REPORT INFORMATION
  Report Type: 
  Country: None (occurrence: None)
  Receive Date: 20111115
  Receipt Date: 20111101
  Transmission Date: 20120403
  Serious: No
  Sender: FDA-Public Use
  Company Number: US-B.I. PHARMACEUTICALS,INC./RIDGEFIELD-2011-BP-23805BP

PATIENT
  Sex: Female

DRUGS (8)
  1. DILTIAZEM HCL [Suspect]
     Indication: HYPERTENSION
  2. DILTIAZEM HCL [Suspect]
     Indication: ATRIAL FIBRILLATION
     Route: 048
     Dates: start: 20110901, end: 20111012
  3. THYROID MEDICATION [Concomitant]
     Indication: THYROID DISORDER
     Dosage: 100 MEQ
     Route: 048
  4. FISH OIL [Concomitant]
     Indication: SUPPLEMENTATION THERAPY
     Route: 048
  5. MULTI-VITAMIN [Concomitant]
     Indication: SUPPLEMENTATION THERAPY
     Route: 048
  6. PRADAXA [Suspect]
     Indication: ATRIAL FIBRILLATION
     Dosage: 150 MG
     Route: 048
     Dates: start: 20111006
  7. LEVOTHYROXINE SODIUM [Concomitant]
     Indication: HYPOTHYROIDISM
     Route: 048
  8. MAGNESIUM [Concomitant]
     Indication: SUPPLEMENTATION THERAPY
     Route: 048

REACTIONS (4)
  - DIZZINESS [None]
  - FATIGUE [None]
  - FALL [None]
  - CONTUSION [None]
